FAERS Safety Report 13507721 (Version 1)
Quarter: 2017Q2

REPORT INFORMATION
  Report Type: Spontaneous
  Country: US (occurrence: US)
  Receive Date: 20170503
  Receipt Date: 20170503
  Transmission Date: 20170830
  Serious: Yes (Life-Threatening, Hospitalization)
  Sender: FDA-Public Use
  Company Number: None

PATIENT
  Age: 91 Year
  Sex: Male
  Weight: 79.38 kg

DRUGS (13)
  1. DILTIAZEM. [Concomitant]
     Active Substance: DILTIAZEM
  2. ZINC. [Concomitant]
     Active Substance: ZINC
  3. ATORVASTATIN [Concomitant]
     Active Substance: ATORVASTATIN
  4. VITAMIN D3 [Concomitant]
     Active Substance: CHOLECALCIFEROL
  5. PROBIOTICS [Concomitant]
     Active Substance: PROBIOTICS NOS
  6. PANTOPRAZOLE [Concomitant]
     Active Substance: PANTOPRAZOLE
  7. GARLIC. [Concomitant]
     Active Substance: GARLIC
  8. HYDROXYUREA. [Concomitant]
     Active Substance: HYDROXYUREA
  9. MIDODRINE [Concomitant]
     Active Substance: MIDODRINE
  10. VITAMIN C [Concomitant]
     Active Substance: ASCORBIC ACID
  11. GLEEVEC [Suspect]
     Active Substance: IMATINIB MESYLATE
     Indication: LEUKAEMIA
     Route: 048
     Dates: start: 20160412, end: 20160414
  12. COD LIVER OIL [Concomitant]
     Active Substance: COD LIVER OIL
  13. COQ10 [Concomitant]
     Active Substance: UBIDECARENONE

REACTIONS (4)
  - Feeling abnormal [None]
  - Fall [None]
  - Internal haemorrhage [None]
  - Loss of consciousness [None]

NARRATIVE: CASE EVENT DATE: 20160416
